FAERS Safety Report 4330730-1 (Version None)
Quarter: 2004Q2

REPORT INFORMATION
  Report Type: 
  Country: None (occurrence: None)
  Receive Date: 20040401
  Receipt Date: 20040401
  Transmission Date: 20050107
  Serious: Yes (Death)
  Sender: FDA-Public Use
  Company Number: None

PATIENT
  Age: 46 Year
  Sex: Male
  Weight: 108.8633 kg

DRUGS (3)
  1. VIAGRA [Suspect]
  2. ZYBAN [Concomitant]
  3. TOPROL-XL [Concomitant]

REACTIONS (1)
  - CIRCULATORY COLLAPSE [None]
